FAERS Safety Report 4689256-8 (Version None)
Quarter: 2005Q2

REPORT INFORMATION
  Report Type: 
  Country: None (occurrence: None)
  Receive Date: 20050613
  Receipt Date: 20050309
  Transmission Date: 20051028
  Serious: Yes (Hospitalization)
  Sender: FDA-Public Use
  Company Number: US-MERCK-0503USA02132

PATIENT
  Age: 51 Year
  Sex: Male
  Weight: 80 kg

DRUGS (9)
  1. ZANAFLEX [Concomitant]
     Indication: PAIN
     Route: 065
     Dates: start: 19991201
  2. SENOKOT [Concomitant]
     Indication: CONSTIPATION
     Route: 065
  3. VIOXX [Suspect]
     Indication: PAIN
     Route: 048
     Dates: start: 20000224, end: 20040901
  4. VIOXX [Suspect]
     Route: 048
     Dates: start: 20000224, end: 20040901
  5. VIOXX [Suspect]
     Route: 048
     Dates: start: 20000224, end: 20040901
  6. MS CONTIN [Concomitant]
     Route: 065
     Dates: start: 19991201
  7. NEURONTIN [Concomitant]
     Indication: NEURALGIA
     Route: 065
     Dates: start: 19991201
  8. EFFEXOR [Concomitant]
     Indication: DEPRESSION
     Route: 065
  9. ZANAFLEX [Concomitant]
     Indication: MUSCLE SPASMS
     Route: 065
     Dates: start: 19991201

REACTIONS (18)
  - AKINESIA [None]
  - ANXIETY [None]
  - BACK PAIN [None]
  - BLINDNESS TRANSIENT [None]
  - BLOOD PRESSURE INCREASED [None]
  - CEREBRAL INFARCTION [None]
  - CEREBROVASCULAR ACCIDENT [None]
  - CORONARY ARTERY DISEASE [None]
  - DILATATION ATRIAL [None]
  - DRUG INEFFECTIVE [None]
  - DYSLIPIDAEMIA [None]
  - EMBOLIC STROKE [None]
  - HEMIANOPIA [None]
  - HEPATIC FAILURE [None]
  - HEPATIC FUNCTION ABNORMAL [None]
  - HYPERTENSION [None]
  - MUSCLE SPASMS [None]
  - VISUAL FIELD DEFECT [None]
